FAERS Safety Report 7911254-9 (Version None)
Quarter: 2011Q4

REPORT INFORMATION
  Report Type: 
  Country: None (occurrence: None)
  Receive Date: 20111108
  Receipt Date: 20111101
  Transmission Date: 20120403
  Serious: Yes (Hospitalization, Other)
  Sender: FDA-Public Use
  Company Number: 2009-198554-NL

PATIENT
  Age: 31 Year
  Sex: Female
  Weight: 90.7194 kg

DRUGS (12)
  1. NUVARING [Suspect]
     Indication: CONTRACEPTION
     Dosage: 1 DF;Q3W;VAG
     Route: 067
     Dates: start: 20040101, end: 20080303
  2. GYNAZOLE [Concomitant]
  3. FLUTICASONE PROPIONATE [Concomitant]
  4. PROMETHAZINE [Concomitant]
  5. XOPENEX [Concomitant]
  6. OXYCODONE HCL AND ACETAMINOPHEN [Concomitant]
  7. ALLEGRA [Concomitant]
  8. CLINDESSE [Concomitant]
  9. FEXOFENADINE [Concomitant]
  10. METRONIDAZOLE [Concomitant]
  11. ANAPROX DS [Concomitant]
  12. GLIMEPIRIDE [Concomitant]

REACTIONS (37)
  - VAGINITIS BACTERIAL [None]
  - LOSS OF CONSCIOUSNESS [None]
  - DEEP VEIN THROMBOSIS [None]
  - ABORTION SPONTANEOUS [None]
  - PREMATURE RUPTURE OF MEMBRANES [None]
  - RETAINED PLACENTA OR MEMBRANES [None]
  - NAUSEA [None]
  - PALPITATIONS [None]
  - DIZZINESS [None]
  - LOW DENSITY LIPOPROTEIN INCREASED [None]
  - OVARIAN CYSTECTOMY [None]
  - HYPERTENSION [None]
  - TYPE 2 DIABETES MELLITUS [None]
  - HAEMODYNAMIC INSTABILITY [None]
  - INTERNATIONAL NORMALISED RATIO INCREASED [None]
  - BACTERAEMIA [None]
  - SEASONAL ALLERGY [None]
  - BLOOD CHOLESTEROL INCREASED [None]
  - HYPERCHOLESTEROLAEMIA [None]
  - ANTIBIOTIC RESISTANT STAPHYLOCOCCUS TEST POSITIVE [None]
  - SYNCOPE [None]
  - UTERINE LEIOMYOMA [None]
  - MATERNAL EXPOSURE DURING PREGNANCY [None]
  - PULMONARY EMBOLISM [None]
  - POST PROCEDURAL INFECTION [None]
  - PREGNANCY WITH CONTRACEPTIVE DEVICE [None]
  - CHORIOAMNIONITIS [None]
  - CONDITION AGGRAVATED [None]
  - VENTRICULAR HYPERTROPHY [None]
  - DYSMENORRHOEA [None]
  - FALL [None]
  - PELVIC PAIN [None]
  - OVARIAN CYST [None]
  - FATIGUE [None]
  - BRONCHIAL HYPERREACTIVITY [None]
  - CERVICAL INCOMPETENCE [None]
  - INJECTION SITE PHLEBITIS [None]
